FAERS Safety Report 12408163 (Version 1)
Quarter: 2016Q2

REPORT INFORMATION
  Report Type: Spontaneous
  Country: GB (occurrence: GB)
  Receive Date: 20160526
  Receipt Date: 20160526
  Transmission Date: 20160815
  Serious: Yes (Death)
  Sender: FDA-Public Use
  Company Number: GB-PFIZER INC-2016273570

PATIENT
  Age: 81 Year
  Sex: Male

DRUGS (1)
  1. GENOTROPIN [Suspect]
     Active Substance: SOMATROPIN
     Dosage: 100 UG, (EXCEPT 200 UG ON MONDAYS, WEDNESDAYS AND FRIDAYS)
     Route: 058

REACTIONS (1)
  - Death [Fatal]
